FAERS Safety Report 6620328-4 (Version None)
Quarter: 2010Q1

REPORT INFORMATION
  Report Type: 
  Country: None (occurrence: None)
  Receive Date: 20100309
  Receipt Date: 20100224
  Transmission Date: 20100710
  Serious: Yes (Other)
  Sender: FDA-Public Use
  Company Number: JP-PFIZER INC-2010027403

PATIENT
  Age: 54 Year
  Sex: Female

DRUGS (1)
  1. CABERGOLINE [Suspect]
     Indication: PARKINSON'S DISEASE

REACTIONS (4)
  - DRUG EFFECT DECREASED [None]
  - MIDDLE INSOMNIA [None]
  - NIGHTMARE [None]
  - SLEEP DISORDER [None]
